FAERS Safety Report 15228813 (Version 2)
Quarter: 2018Q3

REPORT INFORMATION
  Report Type: Spontaneous
  Country: DE (occurrence: DE)
  Receive Date: 20180801
  Receipt Date: 20180920
  Transmission Date: 20181010
  Serious: Yes (Death, Other)
  Sender: FDA-Public Use
  Company Number: PHHY2018DE056325

PATIENT
  Age: 15 Year
  Sex: Male

DRUGS (10)
  1. CRIZOTINIB [Suspect]
     Active Substance: CRIZOTINIB
     Indication: PRODUCT USED FOR UNKNOWN INDICATION
     Dosage: FOURTH THERAPY REGIME: CRIZOTINIB 500 MG P.O. (STANDARD DOSAGE)
     Route: 048
  2. SORAFENIB [Suspect]
     Active Substance: SORAFENIB
     Indication: EWING^S SARCOMA
     Dosage: SECOND THERAPY REGIME: SORAFENIB 400 MG P.O. (REDUCED DOSAGE)
     Route: 048
  3. ARSENIC TRIOXIDE [Suspect]
     Active Substance: ARSENIC TRIOXIDE
     Indication: EWING^S SARCOMA
     Dosage: THIRD THERAPY REGIME: ARSENIC TRIOXIDE 0.1 MG/KG P.O. (REDUCED DOSAGE)
     Route: 048
  4. VINCRISTINE [Suspect]
     Active Substance: VINCRISTINE
     Indication: PRODUCT USED FOR UNKNOWN INDICATION
     Dosage: UNK
     Route: 065
  5. TRIAMTERENE. [Suspect]
     Active Substance: TRIAMTERENE
     Indication: EWING^S SARCOMA
     Dosage: SECOND THERAPY REGIME: TRIAMTERENE  25 MG P.O. (REDUCED DOSAGE)
     Route: 048
  6. TRETINOIN. [Suspect]
     Active Substance: TRETINOIN
     Indication: EWING^S SARCOMA
     Dosage: SECOND THERAPY REGIME: TRETINOIN 25 MG/M^2 P.O. (REDUCED DOSAGE)
     Route: 048
  7. VORINOSTAT [Suspect]
     Active Substance: VORINOSTAT
     Indication: EWING^S SARCOMA
     Dosage: SECOND THERAPY REGIME: VERINOSTAT 400 MG P.O. (STANDARD DOSAGE)
     Route: 048
  8. PACLITAXEL. [Suspect]
     Active Substance: PACLITAXEL
     Indication: PRODUCT USED FOR UNKNOWN INDICATION
     Route: 065
  9. VITAMIN E [Suspect]
     Active Substance: .ALPHA.-TOCOPHEROL
     Indication: EWING^S SARCOMA
     Dosage: THIRD THERAPY REGIME: VITAMIN E 400 IE P.O. (STANDARD DOSAGE)
     Route: 048
  10. TOCOPHEROL [Suspect]
     Active Substance: TOCOPHEROL
     Indication: EWING^S SARCOMA
     Dosage: THIRD THERAPY REGIME: VITAMIN E 400 IE P.O. (STANDARD DOSAGE)
     Route: 048

REACTIONS (8)
  - Dyspnoea [Unknown]
  - Product use in unapproved indication [Unknown]
  - Anaemia [Unknown]
  - Lymphopenia [Unknown]
  - Activated partial thromboplastin time prolonged [Unknown]
  - Pneumonia [Unknown]
  - Bone pain [Unknown]
  - Thrombocytopenia [Unknown]
